FAERS Safety Report 6361179-8 (Version None)
Quarter: 2009Q3

REPORT INFORMATION
  Report Type: 
  Country: None (occurrence: None)
  Receive Date: 20090918
  Receipt Date: 20090904
  Transmission Date: 20100115
  Serious: Yes (Hospitalization)
  Sender: FDA-Public Use
  Company Number: US-BAYER-200929523NA

PATIENT
  Age: 82 Year
  Sex: Male

DRUGS (11)
  1. CAMPATH [Suspect]
     Indication: CHRONIC LYMPHOCYTIC LEUKAEMIA
     Dosage: AS USED: 30 MG
     Route: 058
     Dates: start: 20090815
  2. CAMPATH [Suspect]
     Dosage: AS USED: 10 MG
     Route: 058
     Dates: start: 20090812, end: 20090812
  3. CAMPATH [Suspect]
     Dosage: AS USED: 3 MG
     Route: 058
     Dates: start: 20090807, end: 20090807
  4. CAMPATH [Suspect]
     Dosage: AS USED: 10 MG
     Route: 058
     Dates: start: 20090810, end: 20090810
  5. CAMPATH [Suspect]
     Dosage: AS USED: 3 MG
     Route: 058
     Dates: start: 20090805, end: 20090805
  6. TYLENOL (CAPLET) [Concomitant]
     Indication: PREMEDICATION
     Route: 048
  7. BENADRYL [Concomitant]
     Indication: PREMEDICATION
     Route: 048
  8. BACTRIM DS [Concomitant]
     Indication: INFECTION PROPHYLAXIS
     Dosage: M/W/F
     Route: 048
  9. VALTREX [Concomitant]
     Indication: INFECTION PROPHYLAXIS
  10. DIFLUCAN [Concomitant]
     Indication: INFECTION PROPHYLAXIS
     Dosage: TOTAL DAILY DOSE: 400 MG
  11. OMNIPRESSOL [Concomitant]
     Indication: ULCER HAEMORRHAGE

REACTIONS (15)
  - ASTHENIA [None]
  - DECREASED APPETITE [None]
  - DIZZINESS [None]
  - EPISTAXIS [None]
  - FATIGUE [None]
  - HEADACHE [None]
  - HYPOPHAGIA [None]
  - MUSCULAR WEAKNESS [None]
  - NAUSEA [None]
  - NIGHT SWEATS [None]
  - POLLAKIURIA [None]
  - PYREXIA [None]
  - SYNCOPE [None]
  - URINARY INCONTINENCE [None]
  - VOMITING [None]
